FAERS Safety Report 11978681 (Version 1)
Quarter: 2016Q1

REPORT INFORMATION
  Report Type: Spontaneous
  Country: CA (occurrence: CA)
  Receive Date: 20160129
  Receipt Date: 20160129
  Transmission Date: 20160526
  Serious: Yes (Other)
  Sender: FDA-Public Use
  Company Number: CA-TEVA-629658ACC

PATIENT
  Age: 58 Year
  Sex: Female
  Weight: 58.57 kg

DRUGS (12)
  1. METOPROLOL. [Concomitant]
     Active Substance: METOPROLOL
  2. FLOVENT [Concomitant]
     Active Substance: FLUTICASONE PROPIONATE
  3. AVAMYS [Concomitant]
     Active Substance: FLUTICASONE FUROATE
  4. DIGESTA-LAC (DAIRY FREE CAPSULES) [Concomitant]
  5. VENTOLIN [Concomitant]
     Active Substance: ALBUTEROL SULFATE
  6. ASA [Concomitant]
     Active Substance: ASPIRIN
  7. BIFIDO FACTOR (DAIRY FREE CAPSULES) [Concomitant]
  8. AMLODIPINE [Concomitant]
     Active Substance: AMLODIPINE BESYLATE
  9. LORAZEPAM. [Concomitant]
     Active Substance: LORAZEPAM
  10. PREMARIN [Concomitant]
     Active Substance: ESTROGENS, CONJUGATED
  11. TEVA-DOXYCYCLINE [Suspect]
     Active Substance: DOXYCYCLINE
     Indication: PNEUMONIA
     Dosage: 200 MILLIGRAM DAILY;
     Route: 048
  12. MEGA DOPHILUS (DAIRY FREE CAPSULES) [Concomitant]

REACTIONS (7)
  - Hyperaesthesia [Not Recovered/Not Resolved]
  - Headache [Not Recovered/Not Resolved]
  - Nausea [Not Recovered/Not Resolved]
  - Paraesthesia [Not Recovered/Not Resolved]
  - Urine output decreased [Not Recovered/Not Resolved]
  - Abdominal discomfort [Not Recovered/Not Resolved]
  - Sunburn [Not Recovered/Not Resolved]
